FAERS Safety Report 11836234 (Version 1)
Quarter: 2015Q4

REPORT INFORMATION
  Report Type: Spontaneous
  Country: CN (occurrence: CN)
  Receive Date: 20151215
  Receipt Date: 20151215
  Transmission Date: 20160305
  Serious: Yes (Hospitalization)
  Sender: FDA-Public Use
  Company Number: CN-ASTRAZENECA-2015SF26034

PATIENT
  Age: 26296 Day
  Sex: Female
  Weight: 56 kg

DRUGS (3)
  1. ROSUVASTATIN [Suspect]
     Active Substance: ROSUVASTATIN
     Indication: ARTERIAL OCCLUSIVE DISEASE
     Route: 048
     Dates: start: 20150310, end: 20150527
  2. ROSUVASTATIN [Suspect]
     Active Substance: ROSUVASTATIN
     Indication: BLOOD CHOLESTEROL ABNORMAL
     Route: 048
     Dates: start: 20150310, end: 20150527
  3. ANTIPLATELET [Concomitant]
     Active Substance: UNSPECIFIED INGREDIENT

REACTIONS (5)
  - Blood creatine increased [Recovered/Resolved]
  - Chest discomfort [Unknown]
  - Blood urea increased [Recovered/Resolved]
  - Blood uric acid increased [Recovered/Resolved]
  - Chest pain [Unknown]

NARRATIVE: CASE EVENT DATE: 20150519
